FAERS Safety Report 25233752 (Version 1)
Quarter: 2025Q2

REPORT INFORMATION
  Report Type: Report from Study
  Country: US (occurrence: US)
  Receive Date: 20250424
  Receipt Date: 20250424
  Transmission Date: 20250717
  Serious: Yes (Death, Other)
  Sender: ACADIA PHARMACEUTICALS
  Company Number: US-ACADIA PHARMACEUTICALS INC.-ACA-2025-PIM-004592

PATIENT
  Sex: Male

DRUGS (15)
  1. NUPLAZID [Suspect]
     Active Substance: PIMAVANSERIN TARTRATE
     Indication: Parkinson^s disease
     Dosage: 34 MILLIGRAM, QD (IN AM)
     Route: 048
     Dates: start: 20220718, end: 20250416
  2. MORPHINE SULFATE [Concomitant]
     Active Substance: MORPHINE SULFATE
  3. CEPHALEXIN [Concomitant]
     Active Substance: CEPHALEXIN
  4. QUETIAPINE [Concomitant]
     Active Substance: QUETIAPINE
  5. QUETIAPINE [Concomitant]
     Active Substance: QUETIAPINE
  6. TRAZODONE [Concomitant]
     Active Substance: TRAZODONE HYDROCHLORIDE
  7. ACETAMINOPHEN [Concomitant]
     Active Substance: ACETAMINOPHEN
  8. LORAZEPAM [Concomitant]
     Active Substance: LORAZEPAM
  9. HYOSCYAMINE [Concomitant]
     Active Substance: HYOSCYAMINE
  10. CEFUROXIME [Concomitant]
     Active Substance: CEFUROXIME
  11. LINEZOLID [Concomitant]
     Active Substance: LINEZOLID
  12. MEMANTINE [Concomitant]
     Active Substance: MEMANTINE
  13. AMLODIPINE [Concomitant]
     Active Substance: AMLODIPINE BESYLATE
  14. LISINOPRIL [Concomitant]
     Active Substance: LISINOPRIL
  15. DONEPEZIL [Concomitant]
     Active Substance: DONEPEZIL

REACTIONS (1)
  - Dementia [Fatal]
